FAERS Safety Report 21389149 (Version 1)
Quarter: 2022Q3

REPORT INFORMATION
  Report Type: Spontaneous
  Country: DE (occurrence: DE)
  Receive Date: 20220929
  Receipt Date: 20220929
  Transmission Date: 20221027
  Serious: Yes (Hospitalization)
  Sender: FDA-Public Use
  Company Number: DE-ADRED-04559-02

PATIENT
  Age: 55 Year
  Sex: Female
  Weight: 85 kg

DRUGS (5)
  1. CISPLATIN [Suspect]
     Active Substance: CISPLATIN
     Indication: Product used for unknown indication
     Dosage: NK
  2. GEMCITABINE [Suspect]
     Active Substance: GEMCITABINE
     Indication: Product used for unknown indication
     Dosage: NK
  3. POTASSIUM IODIDE [Concomitant]
     Active Substance: POTASSIUM IODIDE
     Indication: Product used for unknown indication
     Dosage: 100 MICROGRAM DAILY; 100 MCG, 1-0-0-0,
  4. CHOLECALCIFEROL [Concomitant]
     Active Substance: CHOLECALCIFEROL
     Indication: Product used for unknown indication
     Dosage: 20000 IU, 1 ON WEDNESDAYS
  5. QUETIAPINE [Concomitant]
     Active Substance: QUETIAPINE
     Indication: Product used for unknown indication
     Dosage: 50 MILLIGRAM DAILY; 50 MG, 0-0-1-0

REACTIONS (4)
  - Systemic infection [Unknown]
  - General physical health deterioration [Unknown]
  - Cough [Unknown]
  - Thrombocytopenia [Unknown]
